FAERS Safety Report 9413874 (Version 2)
Quarter: 2013Q3

REPORT INFORMATION
  Report Type: Spontaneous
  Country: JP (occurrence: JP)
  Receive Date: 20130723
  Receipt Date: 20130809
  Transmission Date: 20140515
  Serious: Yes (Other)
  Sender: FDA-Public Use
  Company Number: JP-JHP PHARMACEUTICALS, LLC-JHP201300470

PATIENT
  Age: 78 Year
  Sex: Female

DRUGS (6)
  1. DANTRIUM [Suspect]
     Indication: MUSCLE SPASMS
     Dosage: 100 MG, DAILY
     Route: 048
     Dates: start: 2003
  2. PAXIL [Suspect]
     Dosage: UNK
     Route: 048
  3. SELBEX [Suspect]
     Dosage: UNK
     Route: 048
  4. ZOLPIDEM [Suspect]
     Dosage: UNK
     Route: 048
  5. RISPERIDONE [Concomitant]
     Dosage: UNK
     Dates: start: 1993
  6. OPALMON [Concomitant]

REACTIONS (1)
  - Breast cancer female [Unknown]
